FAERS Safety Report 9078774 (Version 2)
Quarter: 2013Q1

REPORT INFORMATION
  Report Type: Spontaneous
  Country: ES (occurrence: ES)
  Receive Date: 20130130
  Receipt Date: 20130220
  Transmission Date: 20140127
  Serious: Yes (Hospitalization, Other)
  Sender: FDA-Public Use
  Company Number: ES-009507513-1301ESP012446

PATIENT
  Sex: Male

DRUGS (4)
  1. INEGY [Suspect]
     Indication: BLOOD CHOLESTEROL
     Dosage: UNK
     Route: 048
     Dates: start: 2012
  2. INEGY [Suspect]
     Indication: BLOOD TRIGLYCERIDES
  3. EZETROL [Suspect]
     Indication: HYPERCHOLESTEROLAEMIA
     Dosage: UNK
     Dates: end: 2012
  4. JANUMET [Concomitant]
     Indication: BLOOD GLUCOSE FLUCTUATION
     Dosage: UNK
     Route: 048
     Dates: start: 2011

REACTIONS (1)
  - Idiopathic thrombocytopenic purpura [Recovered/Resolved]
